FAERS Safety Report 7650259-2 (Version None)
Quarter: 2011Q3

REPORT INFORMATION
  Report Type: 
  Country: None (occurrence: None)
  Receive Date: 20110802
  Receipt Date: 20110721
  Transmission Date: 20111222
  Serious: Yes (Other)
  Sender: FDA-Public Use
  Company Number: US-ROCHE-792973

PATIENT
  Sex: Female

DRUGS (1)
  1. AVASTIN [Suspect]
     Indication: COLORECTAL CANCER
     Dosage: FEW MONTHS
     Route: 065

REACTIONS (2)
  - CENTRAL NERVOUS SYSTEM MASS [None]
  - BRAIN MIDLINE SHIFT [None]
